FAERS Safety Report 7162119-4 (Version None)
Quarter: 2010Q4

REPORT INFORMATION
  Report Type: 
  Country: None (occurrence: None)
  Receive Date: 20101215
  Receipt Date: 20090813
  Transmission Date: 20110411
  Serious: Yes (Hospitalization)
  Sender: FDA-Public Use
  Company Number: FR-PFIZER INC-2009254142

PATIENT
  Age: 87 Year

DRUGS (14)
  1. ALDACTONE [Suspect]
     Dosage: 75 MG, 1X/DAY
     Route: 048
     Dates: end: 20090628
  2. LYRICA [Suspect]
     Dosage: 50 MG, 2X/DAY
     Route: 048
     Dates: end: 20090628
  3. ZOLOFT [Suspect]
     Dosage: 50 MG, 1X/DAY
     Route: 048
     Dates: end: 20090628
  4. APROVEL [Suspect]
     Dosage: 75 MG, 1X/DAY
     Route: 048
     Dates: end: 20090628
  5. NEXIUM [Suspect]
     Dosage: 20 MG, 1X/DAY
     Route: 048
     Dates: end: 20090628
  6. ANAFRANIL [Suspect]
     Dosage: 25 MG, 1X/DAY
     Route: 048
     Dates: end: 20090628
  7. CYMBALTA [Suspect]
     Dosage: 30 MG, 1X/DAY
     Route: 048
     Dates: end: 20090628
  8. ZOLPIDEM [Concomitant]
     Dosage: 10 MG, UNK
  9. FLECAINIDE ACETATE [Concomitant]
     Dosage: 50 MG, 1X/DAY
  10. ALPRAZOLAM [Concomitant]
     Dosage: 0.25 MG, 1X/DAY
  11. CIFLOX [Concomitant]
     Dosage: 1 DF, 2X/DAY
  12. URIDOZ [Concomitant]
     Indication: URINARY TRACT INFECTION
     Dosage: UNK
     Dates: start: 20090626
  13. DEBRIDAT ^IBRAHIM^ [Concomitant]
  14. TRANSIPEG [Concomitant]

REACTIONS (2)
  - HYPONATRAEMIA [None]
  - HYPOTENSION [None]
